FAERS Safety Report 5820999-6 (Version None)
Quarter: 2008Q3

REPORT INFORMATION
  Report Type: 
  Country: None (occurrence: None)
  Receive Date: 20080724
  Receipt Date: 20080717
  Transmission Date: 20090109
  Serious: Yes (Hospitalization)
  Sender: FDA-Public Use
  Company Number: US-JNJFOC-20060406141

PATIENT
  Sex: Female
  Weight: 68.95 kg

DRUGS (1)
  1. ORTHO EVRA [Suspect]
     Indication: CONTRACEPTION

REACTIONS (25)
  - AMENORRHOEA [None]
  - AMNESIA [None]
  - ANAEMIA [None]
  - ATELECTASIS [None]
  - BACTERIAL INFECTION [None]
  - BRONCHOPLEURAL FISTULA [None]
  - EMPYEMA [None]
  - ENDOMETRIAL HYPERTROPHY [None]
  - GRANULOMA [None]
  - HAEMOTHORAX [None]
  - HEPATIC ENZYME INCREASED [None]
  - HYDROPNEUMOTHORAX [None]
  - HYPERCOAGULATION [None]
  - INTERNATIONAL NORMALISED RATIO FLUCTUATION [None]
  - LUNG ABSCESS [None]
  - LUNG CONSOLIDATION [None]
  - LUNG NEOPLASM [None]
  - PAIN IN EXTREMITY [None]
  - PLEURAL EFFUSION [None]
  - PLEURAL FIBROSIS [None]
  - POLYCYSTIC OVARIES [None]
  - PULMONARY EMBOLISM [None]
  - PULMONARY INFARCTION [None]
  - TREATMENT NONCOMPLIANCE [None]
  - VAGINAL HAEMORRHAGE [None]
